FAERS Safety Report 10502284 (Version 3)
Quarter: 2015Q2

REPORT INFORMATION
  Report Type: Spontaneous
  Country: FR (occurrence: FR)
  Receive Date: 20141007
  Receipt Date: 20150401
  Transmission Date: 20150821
  Serious: Yes (Hospitalization)
  Sender: FDA-Public Use
  Company Number: PHHY2014FR119668

PATIENT
  Age: 11 Year
  Sex: Female
  Weight: 41 kg

DRUGS (6)
  1. LAMICTAL [Concomitant]
     Active Substance: LAMOTRIGINE
     Indication: PRODUCT USED FOR UNKNOWN INDICATION
     Route: 048
  2. AUGMENTIN [Concomitant]
     Active Substance: AMOXICILLIN\CLAVULANATE POTASSIUM
     Indication: LUNG DISORDER
     Dosage: 1 G, TID
     Route: 048
     Dates: start: 20140730, end: 20140815
  3. PHOCYTAN [Concomitant]
     Active Substance: .ALPHA.-GLUCOSE-1-PHOSPHATE
     Indication: PRODUCT USED FOR UNKNOWN INDICATION
     Dosage: 50 DRP, BID
     Route: 065
     Dates: start: 20140730, end: 20140815
  4. MAG 2 [Concomitant]
     Active Substance: MAGNESIUM CHLORIDE
     Indication: PRODUCT USED FOR UNKNOWN INDICATION
     Dosage: 2 DF, QD
     Route: 048
     Dates: start: 20140730, end: 20140815
  5. VOTUBIA [Suspect]
     Active Substance: EVEROLIMUS
     Indication: GENE MUTATION
     Dosage: 12.5 MG, QD
     Route: 048
     Dates: start: 20140424
  6. VOTUBIA [Suspect]
     Active Substance: EVEROLIMUS
     Dosage: 10 MG, QD
     Route: 048

REACTIONS (7)
  - Acne [Not Recovered/Not Resolved]
  - Pain [Unknown]
  - Agitation [Recovered/Resolved]
  - Screaming [Recovered/Resolved]
  - Off label use [Unknown]
  - Overdose [Recovered/Resolved]
  - Hirsutism [Not Recovered/Not Resolved]

NARRATIVE: CASE EVENT DATE: 201405
